FAERS Safety Report 5277985-7 (Version None)
Quarter: 2007Q1

REPORT INFORMATION
  Report Type: 
  Country: None (occurrence: None)
  Receive Date: 20070321
  Receipt Date: 20070313
  Transmission Date: 20070707
  Serious: Yes (Congenital Anomaly, Other)
  Sender: FDA-Public Use
  Company Number: THQ2007A00193

PATIENT
  Sex: Male

DRUGS (4)
  1. LANSOPRAZOLE [Suspect]
     Dosage: 1-2 TIMES A DAY (30 MG) TRANSPLACENTAL
     Route: 064
     Dates: start: 20011013, end: 20020325
  2. GAVISCON [Suspect]
     Dosage: TRANSPLACENTAL
     Route: 064
     Dates: start: 20010901, end: 20020325
  3. CELESTONE [Suspect]
     Dosage: TRANSPLACENTAL
     Route: 064
     Dates: start: 20020219, end: 20020325
  4. YUTOPAR [Suspect]
     Dosage: TRANSPLACENTAL
     Route: 064
     Dates: start: 20020219, end: 20020325

REACTIONS (3)
  - DRUG EXPOSURE DURING PREGNANCY [None]
  - LARYNGOMALACIA [None]
  - LOWER RESPIRATORY TRACT INFECTION [None]
